FAERS Safety Report 4318897-2 (Version None)
Quarter: 2004Q1

REPORT INFORMATION
  Report Type: 
  Country: None (occurrence: None)
  Receive Date: 20040315
  Receipt Date: 20040303
  Transmission Date: 20041129
  Serious: Yes (Disabling, Other)
  Sender: FDA-Public Use
  Company Number: 2004014878

PATIENT
  Age: 55 Year
  Sex: Female
  Weight: 102.9665 kg

DRUGS (2)
  1. ACCUPRIL [Suspect]
     Indication: HYPERTENSION
     Dosage: 80 MG (BID), ORAL
     Route: 048
  2. GLIMEPIRIDE [Concomitant]

REACTIONS (5)
  - ASTHENIA [None]
  - FEELING ABNORMAL [None]
  - IMPAIRED WORK ABILITY [None]
  - LABORATORY TEST ABNORMAL [None]
  - LYMPHOMA [None]
